FAERS Safety Report 7781901-3 (Version None)
Quarter: 2011Q3

REPORT INFORMATION
  Report Type: 
  Country: None (occurrence: None)
  Receive Date: 20110927
  Receipt Date: 20110920
  Transmission Date: 20111222
  Serious: Yes (Life-Threatening, Hospitalization)
  Sender: FDA-Public Use
  Company Number: JP-ASTRAZENECA-2011SE55695

PATIENT
  Age: 53 Year
  Sex: Female
  Weight: 81 kg

DRUGS (8)
  1. SEROQUEL [Suspect]
     Route: 048
     Dates: start: 20110907, end: 20110909
  2. RISPERDAL [Concomitant]
     Route: 042
     Dates: start: 20101109, end: 20110826
  3. VEGETAMIN A [Concomitant]
     Dates: end: 20110909
  4. SEROQUEL [Suspect]
     Indication: SCHIZOPHRENIA
     Route: 048
     Dates: start: 20071205, end: 20110821
  5. VALPROATE SODIUM [Concomitant]
     Dates: start: 20110902, end: 20110909
  6. CRESTOR [Concomitant]
     Route: 048
     Dates: start: 20110718, end: 20110909
  7. SEROQUEL [Suspect]
     Route: 048
     Dates: start: 20110822, end: 20110906
  8. FLUNITRAZEPAM [Concomitant]
     Route: 048
     Dates: end: 20110909

REACTIONS (1)
  - PULMONARY EMBOLISM [None]
